FAERS Safety Report 20643131 (Version 1)
Quarter: 2022Q1

REPORT INFORMATION
  Report Type: Spontaneous
  Country: US (occurrence: None)
  Receive Date: 20220325
  Receipt Date: 20220325
  Transmission Date: 20220423
  Serious: Yes (Life-Threatening, Hospitalization)
  Sender: FDA-Public Use
  Company Number: None

PATIENT
  Age: 85 Year
  Sex: Male
  Weight: 82.3 kg

DRUGS (2)
  1. APIXABAN [Suspect]
     Active Substance: APIXABAN
     Indication: Atrial fibrillation
     Dosage: FREQUENCY : TWICE A DAY;?
     Route: 048
     Dates: start: 20211101, end: 20220110
  2. Aspirin 81 mg [Concomitant]

REACTIONS (3)
  - Subdural haemorrhage [None]
  - Cerebral mass effect [None]
  - Platelet dysfunction [None]

NARRATIVE: CASE EVENT DATE: 20220110
